FAERS Safety Report 6728203-1 (Version None)
Quarter: 2010Q2

REPORT INFORMATION
  Report Type: 
  Country: None (occurrence: None)
  Receive Date: 20100517
  Receipt Date: 20100512
  Transmission Date: 20101027
  Serious: Yes (Other)
  Sender: FDA-Public Use
  Company Number: B0653036A

PATIENT
  Sex: Female

DRUGS (7)
  1. KIVEXA [Suspect]
     Indication: DRUG USE FOR UNKNOWN INDICATION
     Dosage: 1TAB PER DAY
     Route: 065
     Dates: start: 20080411
  2. REYATAZ [Concomitant]
     Dosage: 300MG PER DAY
     Dates: start: 20080930
  3. NORVIR [Concomitant]
     Dosage: 100MG PER DAY
  4. UNKNOWN [Concomitant]
  5. BETAPRED [Concomitant]
  6. KALCIPOS D [Concomitant]
  7. UNSPECIFIED DRUG [Concomitant]

REACTIONS (4)
  - ARTHRALGIA [None]
  - BACTERIAL INFECTION [None]
  - ERYTHEMA [None]
  - OSTEONECROSIS [None]
